FAERS Safety Report 8584429-6 (Version None)
Quarter: 2012Q3

REPORT INFORMATION
  Report Type: 
  Country: None (occurrence: None)
  Receive Date: 20120810
  Receipt Date: 20120728
  Transmission Date: 20120928
  Serious: Yes (Death, Other)
  Sender: FDA-Public Use
  Company Number: TR-PAR PHARMACEUTICAL, INC-2012SCPR004539

PATIENT

DRUGS (6)
  1. BORTEZOMIB [Suspect]
     Dosage: 1 MG, / DAY
     Route: 065
  2. THYROID REPLACEMENT THERAPY [Concomitant]
     Indication: THYROID THERAPY
     Dosage: UNK, UNKNOWN
     Route: 065
  3. DEXAMETHASONE [Suspect]
     Indication: MULTIPLE MYELOMA
     Dosage: UNK, UNKNOWN
     Route: 065
  4. THALIDOMIDE [Suspect]
     Indication: MULTIPLE MYELOMA
     Dosage: UNK, UNKNOWN
     Route: 065
  5. HYDROXYUREA [Suspect]
     Indication: ESSENTIAL THROMBOCYTHAEMIA
     Dosage: UNK, UNKNOWN
     Route: 065
     Dates: start: 20000901
  6. BORTEZOMIB [Suspect]
     Indication: MULTIPLE MYELOMA
     Dosage: 1.3 MG/M2 DAYS:1,4,8,11
     Route: 065

REACTIONS (3)
  - PERIPHERAL SENSORIMOTOR NEUROPATHY [None]
  - DEATH [None]
  - MULTIPLE MYELOMA [None]
